FAERS Safety Report 13736947 (Version 2)
Quarter: 2017Q3

REPORT INFORMATION
  Report Type: Report from Study
  Country: US (occurrence: US)
  Receive Date: 20170710
  Receipt Date: 20170811
  Transmission Date: 20171127
  Serious: Yes (Death)
  Sender: FDA-Public Use
  Company Number: US-PFIZER INC-2017292973

PATIENT

DRUGS (1)
  1. DOXORUBICIN HCL [Suspect]
     Active Substance: DOXORUBICIN HYDROCHLORIDE
     Indication: SARCOMA METASTATIC
     Dosage: 75 MG/M2, CYCLIC (ADMINISTERED 2-4 H)(ON DAY 1 OF EVERY 21-DAY CYCLE)
     Route: 040

REACTIONS (1)
  - Lactic acidosis [Fatal]
